FAERS Safety Report 11412165 (Version 2)
Quarter: 2015Q3

REPORT INFORMATION
  Report Type: Spontaneous
  Country: US (occurrence: US)
  Receive Date: 20150821
  Receipt Date: 20150903
  Transmission Date: 20151125
  Serious: No
  Sender: FDA-Public Use
  Company Number: US-ELI_LILLY_AND_COMPANY-US201202003239

PATIENT
  Age: 32 Year
  Sex: Female
  Weight: 113.38 kg

DRUGS (7)
  1. HUMALOG [Suspect]
     Active Substance: INSULIN LISPRO
     Indication: TYPE 2 DIABETES MELLITUS
     Dosage: UNK UNK, BID
     Dates: start: 20111128
  2. HUMULIN N [Suspect]
     Active Substance: INSULIN HUMAN
     Indication: TYPE 2 DIABETES MELLITUS
     Dosage: 35 U, EACH MORNING
     Dates: start: 20111128
  3. HUMULIN N [Suspect]
     Active Substance: INSULIN HUMAN
     Dosage: 45 U, EACH EVENING
     Dates: start: 20111128
  4. HUMULIN N [Suspect]
     Active Substance: INSULIN HUMAN
     Indication: TYPE 2 DIABETES MELLITUS
     Dosage: 35 U, EACH MORNING
     Dates: start: 20111128
  5. HUMULIN N [Suspect]
     Active Substance: INSULIN HUMAN
     Dosage: 45 U, EACH EVENING
     Dates: start: 20111128
  6. METFORMIN [Concomitant]
     Active Substance: METFORMIN HYDROCHLORIDE
     Dosage: 1000 MG, BID
  7. VITAMINS [Concomitant]
     Active Substance: VITAMINS
     Indication: SUPPLEMENTATION THERAPY
     Dosage: UNK

REACTIONS (4)
  - Injection site pain [Unknown]
  - Injection site bruising [Unknown]
  - Exposure during pregnancy [Not Recovered/Not Resolved]
  - Fear [Unknown]

NARRATIVE: CASE EVENT DATE: 201111
